FAERS Safety Report 8517916-7 (Version None)
Quarter: 2012Q3

REPORT INFORMATION
  Report Type: 
  Country: None (occurrence: None)
  Receive Date: 20120718
  Receipt Date: 20110808
  Transmission Date: 20120928
  Serious: No
  Sender: FDA-Public Use
  Company Number: US-BRISTOL-MYERS SQUIBB COMPANY-15907801

PATIENT
  Age: 67 Year
  Sex: Female

DRUGS (2)
  1. COUMADIN [Suspect]
     Indication: ATRIAL FIBRILLATION
     Route: 048
     Dates: start: 20100107, end: 20100330
  2. MULTAQ [Suspect]
     Dates: start: 20100107

REACTIONS (3)
  - PERIPHERAL COLDNESS [None]
  - GINGIVAL BLEEDING [None]
  - PARAESTHESIA [None]
